FAERS Safety Report 8420033-8 (Version None)
Quarter: 2012Q2

REPORT INFORMATION
  Report Type: 
  Country: None (occurrence: None)
  Receive Date: 20120607
  Receipt Date: 20120601
  Transmission Date: 20120825
  Serious: Yes (Life-Threatening, Other)
  Sender: FDA-Public Use
  Company Number: DE-TEVA-341438USA

PATIENT
  Age: 83 Year
  Sex: Female

DRUGS (2)
  1. RITUXIMAB [Suspect]
     Indication: PROLYMPHOCYTIC LEUKAEMIA
     Dosage: UNKNOWN
  2. TREANDA [Suspect]
     Indication: PROLYMPHOCYTIC LEUKAEMIA
     Dosage: UNKNOWN/ 6 CYCLES
     Route: 042

REACTIONS (2)
  - HEPATITIS B [None]
  - HEPATIC FAILURE [None]
